FAERS Safety Report 4907826-6 (Version None)
Quarter: 2006Q1

REPORT INFORMATION
  Report Type: 
  Country: None (occurrence: None)
  Receive Date: 20060208
  Receipt Date: 20060125
  Transmission Date: 20060701
  Serious: Yes (Other)
  Sender: FDA-Public Use
  Company Number: 2006P1000068

PATIENT
  Age: 44 Year
  Sex: Male
  Weight: 82 kg

DRUGS (11)
  1. RETEPLASE (RETEPLASE) [Suspect]
     Indication: ACUTE MYOCARDIAL INFARCTION
     Dosage: 5 IU; 1X; IV
     Route: 042
     Dates: start: 20050911, end: 20050911
  2. RETEPLASE (RETEPLASE) [Suspect]
     Indication: ACUTE MYOCARDIAL INFARCTION
     Dosage: 5 IU; 1X; IV
     Route: 042
     Dates: start: 20050911, end: 20050911
  3. ABCIXIMAB (ABCIXIMAB) [Suspect]
     Dosage: 01.2 + 48 ML; 1X; IV
     Route: 042
     Dates: start: 20050911, end: 20050911
  4. ABCIXIMAB (ABCIXIMAB) [Suspect]
     Dosage: 01.2 + 48 ML; 1X; IV
     Route: 042
     Dates: start: 20050911, end: 20050911
  5. ASPIRIN [Concomitant]
  6. BETA BLOCKING AGENTS [Concomitant]
  7. ACE INHIBITOR NOS [Concomitant]
  8. CHOLESTEROL- AND TRIGLYCERIDE REDUCERS [Concomitant]
  9. CLOPIDOGREL [Concomitant]
  10. TICLOPIDINE HCL [Concomitant]
  11. HEPARIN [Concomitant]

REACTIONS (4)
  - BLOOD PRESSURE SYSTOLIC INCREASED [None]
  - INJECTION SITE HAEMORRHAGE [None]
  - POST PROCEDURAL COMPLICATION [None]
  - PUNCTURE SITE HAEMORRHAGE [None]
